FAERS Safety Report 8176421-0 (Version None)
Quarter: 2012Q1

REPORT INFORMATION
  Report Type: 
  Country: None (occurrence: None)
  Receive Date: 20120301
  Receipt Date: 20120222
  Transmission Date: 20120608
  Serious: Yes (Other)
  Sender: FDA-Public Use
  Company Number: US-SANOFI-AVENTIS-2012SA012703

PATIENT
  Age: 70 Year
  Sex: Female

DRUGS (3)
  1. ALLEGRA-D 12 HOUR [Suspect]
  2. CLARITIN [Concomitant]
  3. ALLEGRA [Suspect]

REACTIONS (3)
  - GLAUCOMA [None]
  - HEADACHE [None]
  - PALPITATIONS [None]
